FAERS Safety Report 7733082-X (Version None)
Quarter: 2011Q3

REPORT INFORMATION
  Report Type: 
  Country: None (occurrence: None)
  Receive Date: 20110907
  Receipt Date: 20110829
  Transmission Date: 20111222
  Serious: Yes (Other)
  Sender: FDA-Public Use
  Company Number: US-MERCK-1108USA03514

PATIENT
  Age: 56 Year
  Sex: Male

DRUGS (4)
  1. LOMOTIL [Concomitant]
     Route: 065
  2. FOLIC ACID [Concomitant]
     Route: 065
  3. FOSAMAX [Suspect]
     Route: 048
     Dates: start: 20090101
  4. ZOLPIDEM TARTRATE [Concomitant]
     Route: 065

REACTIONS (3)
  - GALLBLADDER DISORDER [None]
  - OESOPHAGEAL CARCINOMA [None]
  - DYSPEPSIA [None]
